FAERS Safety Report 5805464-4 (Version None)
Quarter: 2008Q3

REPORT INFORMATION
  Report Type: 
  Country: None (occurrence: None)
  Receive Date: 20080710
  Receipt Date: 20080630
  Transmission Date: 20090109
  Serious: Yes (Hospitalization, Other)
  Sender: FDA-Public Use
  Company Number: GB-JNJFOC-20080700754

PATIENT
  Age: 78 Year
  Sex: Male

DRUGS (8)
  1. KETOCONAZOLE [Suspect]
     Indication: DRUG USE FOR UNKNOWN INDICATION
     Route: 048
  2. SIMVASTATIN [Interacting]
     Indication: DRUG USE FOR UNKNOWN INDICATION
     Route: 048
     Dates: start: 20080415, end: 20080611
  3. ASPIRIN [Concomitant]
  4. BICALUTAMIDE [Concomitant]
  5. BISOPROLOL FUMARATE [Concomitant]
  6. ERYTHROMYCIN [Concomitant]
  7. ISOSORBIDE DINITRATE [Concomitant]
  8. RANITIDINE HCL [Concomitant]

REACTIONS (4)
  - BLOOD CREATINE PHOSPHOKINASE INCREASED [None]
  - DRUG INTERACTION [None]
  - FALL [None]
  - MYOSITIS [None]
